FAERS Safety Report 21918647 (Version 1)
Quarter: 2023Q1

REPORT INFORMATION
  Report Type: Spontaneous
  Country: US (occurrence: None)
  Receive Date: 20230126
  Receipt Date: 20230126
  Transmission Date: 20230418
  Serious: No
  Sender: FDA-Public Use
  Company Number: None

PATIENT
  Age: 10 Year
  Sex: Male

DRUGS (1)
  1. PULMOZYME [Suspect]
     Active Substance: DORNASE ALFA
     Indication: Cystic fibrosis
     Dosage: FREQUENCY : DAILY;?
     Route: 055
     Dates: start: 202003

REACTIONS (5)
  - Insurance issue [None]
  - Therapy interrupted [None]
  - Gastrointestinal disorder [None]
  - Sinus disorder [None]
  - Mental disorder [None]

NARRATIVE: CASE EVENT DATE: 20230126
